FAERS Safety Report 6225070-X (Version None)
Quarter: 2009Q2

REPORT INFORMATION
  Report Type: 
  Country: None (occurrence: None)
  Receive Date: 20090612
  Receipt Date: 20090403
  Transmission Date: 20091009
  Serious: No
  Sender: FDA-Public Use
  Company Number: US-ABBOTT-09P-163-0566796-00

PATIENT
  Sex: Female
  Weight: 104.42 kg

DRUGS (11)
  1. HUMIRA [Suspect]
     Indication: CROHN'S DISEASE
     Route: 058
     Dates: start: 20060701, end: 20070701
  2. HUMIRA [Suspect]
     Route: 058
     Dates: start: 20070701, end: 20090301
  3. MERCAPTOPURINE [Concomitant]
     Indication: CROHN'S DISEASE
  4. VERAPAMIL [Concomitant]
     Indication: HYPERTENSION
  5. ENALAPRIL [Concomitant]
     Indication: HYPERTENSION
  6. NEXIUM [Concomitant]
     Indication: DRUG USE FOR UNKNOWN INDICATION
  7. POTASSIUM CHLORIDE [Concomitant]
     Indication: DRUG USE FOR UNKNOWN INDICATION
  8. ANTIVERT [Concomitant]
     Indication: MENIERE'S DISEASE
  9. HYDROCHLOROTHIAZIDE [Concomitant]
     Indication: MENIERE'S DISEASE
  10. PAMELOR [Concomitant]
     Indication: DRUG USE FOR UNKNOWN INDICATION
     Route: 048
  11. COUMADIN [Concomitant]
     Indication: DRUG USE FOR UNKNOWN INDICATION

REACTIONS (12)
  - ABDOMINAL PAIN UPPER [None]
  - BLOOD GLUCOSE INCREASED [None]
  - CANDIDIASIS [None]
  - COUGH [None]
  - CROHN'S DISEASE [None]
  - FREQUENT BOWEL MOVEMENTS [None]
  - FUNGUS SPUTUM TEST POSITIVE [None]
  - LUNG INFECTION [None]
  - PNEUMONIA [None]
  - PNEUMONIA FUNGAL [None]
  - PRODUCTIVE COUGH [None]
  - PYREXIA [None]
